FAERS Safety Report 7094343-3 (Version None)
Quarter: 2010Q4

REPORT INFORMATION
  Report Type: 
  Country: None (occurrence: None)
  Receive Date: 20101110
  Receipt Date: 20101104
  Transmission Date: 20110411
  Serious: Yes (Death, Life-Threatening, Hospitalization)
  Sender: FDA-Public Use
  Company Number: JP-ELI_LILLY_AND_COMPANY-JP201004000388

PATIENT
  Sex: Male
  Weight: 47 kg

DRUGS (9)
  1. ALIMTA [Suspect]
     Indication: LUNG ADENOCARCINOMA STAGE IV
     Dosage: 700 MG, UNK
     Route: 042
     Dates: start: 20100202, end: 20100223
  2. PANVITAN [Concomitant]
     Dosage: 1 G, DAILY (1/D)
     Route: 048
     Dates: start: 20100112, end: 20100330
  3. HYDROXOCOBALAMIN ACETATE [Concomitant]
     Dosage: 1 MG, DAILY (1/D)
     Route: 030
     Dates: start: 20100112
  4. TOUGHMAC E [Concomitant]
     Indication: GASTRIC OPERATION
     Dosage: 3 D/F, DAILY (1/D)
     Route: 048
     Dates: end: 20100330
  5. SERMION [Concomitant]
     Indication: CEREBELLAR INFARCTION
     Dosage: 5 MG, 3/D
     Route: 048
     Dates: end: 20100330
  6. MINOCYCLINE HCL [Concomitant]
     Indication: PEMPHIGOID
     Dosage: 50 MG, 2/D
     Route: 048
     Dates: end: 20100330
  7. TICLOPIDINE HCL [Concomitant]
     Indication: CEREBELLAR INFARCTION
     Dosage: 100 MG, 2/D
     Route: 048
     Dates: end: 20100330
  8. PREDNISOLONE [Concomitant]
     Indication: PEMPHIGOID
     Dosage: 8 MG, DAILY (1/D)
     Route: 048
     Dates: end: 20100330
  9. RENIVACE [Concomitant]
     Indication: HYPERTENSION
     Dosage: 5 MG, DAILY (1/D)
     Route: 048
     Dates: end: 20100330

REACTIONS (2)
  - INTERSTITIAL LUNG DISEASE [None]
  - PLEURAL EFFUSION [None]
